FAERS Safety Report 8869184 (Version 1)
Quarter: 2012Q4

REPORT INFORMATION
  Report Type: Spontaneous
  Country: DE (occurrence: None)
  Receive Date: 20121022
  Receipt Date: 20121022
  Transmission Date: 20130627
  Serious: Yes (Hospitalization)
  Sender: FDA-Public Use
  Company Number: DSA_60160_2012

PATIENT
  Sex: Female

DRUGS (2)
  1. ELONTRIL [Suspect]
     Indication: PRODUCT USED FOR UNKNOWN INDICATION
     Dosage: 300 mg, (DF Oral)
     Route: 048
     Dates: start: 201205
  2. L-THYROXIN (UNKNOWN) [Concomitant]

REACTIONS (16)
  - Tinnitus [None]
  - Hyperhidrosis [None]
  - Pollakiuria [None]
  - Nocturia [None]
  - Muscle spasms [None]
  - Hypertonia [None]
  - Arrhythmia [None]
  - Parosmia [None]
  - Thirst decreased [None]
  - Visual acuity reduced [None]
  - Alopecia [None]
  - Iron deficiency [None]
  - Anger [None]
  - Constipation [None]
  - Depression [None]
  - Hospitalisation [None]
